FAERS Safety Report 15948840 (Version 2)
Quarter: 2019Q1

REPORT INFORMATION
  Report Type: Report from Study
  Country: ES (occurrence: ES)
  Receive Date: 20190212
  Receipt Date: 20190215
  Transmission Date: 20190417
  Serious: Yes (Hospitalization)
  Sender: FDA-Public Use
  Company Number: ES-ACCORD-106603

PATIENT
  Age: 76 Year
  Sex: Female

DRUGS (8)
  1. PARACETAMOL [Concomitant]
     Active Substance: ACETAMINOPHEN
     Dosage: 1GR EVERY 8 HOURS
     Route: 048
     Dates: start: 20161103
  2. SERTRALINE [Concomitant]
     Active Substance: SERTRALINE HYDROCHLORIDE
     Dosage: 50 MG DAY
     Route: 048
     Dates: start: 20161103
  3. EXFORGE [Interacting]
     Active Substance: AMLODIPINE BESYLATE\VALSARTAN
     Indication: PRODUCT USED FOR UNKNOWN INDICATION
     Dosage: 1-0-0
     Route: 048
     Dates: start: 20161103, end: 20171004
  4. EMCONCOR [Concomitant]
     Active Substance: BISOPROLOL FUMARATE
     Dosage: 1/2-0-0
     Route: 048
     Dates: start: 20161103
  5. PLAVIX [Concomitant]
     Active Substance: CLOPIDOGREL BISULFATE
     Dosage: 0-1-0
     Route: 048
     Dates: start: 20161103
  6. NOVOMIX 30 [Concomitant]
     Active Substance: INSULIN ASPART
     Dosage: 18-0-0
     Route: 058
     Dates: start: 20161103
  7. METAMIZOLE SODIUM [Concomitant]
     Active Substance: METAMIZOLE SODIUM
     Dosage: 1-0-0
     Route: 048
     Dates: start: 20161103
  8. FUROSEMIDE. [Suspect]
     Active Substance: FUROSEMIDE
     Indication: PRODUCT USED FOR UNKNOWN INDICATION
     Dosage: 1-0-0
     Route: 048
     Dates: start: 20161103

REACTIONS (3)
  - Hypokalaemia [Recovered/Resolved]
  - Drug interaction [Unknown]
  - Fall [Unknown]

NARRATIVE: CASE EVENT DATE: 20170404
